FAERS Safety Report 4664988-6 (Version None)
Quarter: 2005Q2

REPORT INFORMATION
  Report Type: 
  Country: None (occurrence: None)
  Receive Date: 20050517
  Receipt Date: 20050506
  Transmission Date: 20051028
  Serious: Yes (Death)
  Sender: FDA-Public Use
  Company Number: 2005BL002981

PATIENT
  Sex: Female

DRUGS (4)
  1. ATROVENT [Suspect]
     Dosage: OROPHARYNGEAL
     Route: 049
  2. ALBUTEROL SULFATE INHALATION SOLUTION 0.5% (SALBUTAMOL SULFATE) [Suspect]
     Dosage: OROPHARYNGEAL
     Route: 049
  3. MINIMS PREDNISOLONE SODIUM PHOSPHATE (PREDNISILONE SODIUM PHOSPHATE) [Suspect]
  4. FOSAMAX /ITA/ (ALENDRONATE SODIUM) [Suspect]

REACTIONS (3)
  - BRONCHITIS [None]
  - CARDIAC FAILURE [None]
  - CHRONIC OBSTRUCTIVE AIRWAYS DISEASE EXACERBATED [None]
